FAERS Safety Report 24871914 (Version 1)
Quarter: 2025Q1

REPORT INFORMATION
  Report Type: Spontaneous
  Country: KR (occurrence: KR)
  Receive Date: 20250122
  Receipt Date: 20250122
  Transmission Date: 20250408
  Serious: Yes (Hospitalization, Disabling)
  Sender: GLAXOSMITHKLINE
  Company Number: KR-GSK-KR2025006171

PATIENT

DRUGS (1)
  1. JEMPERLI [Suspect]
     Active Substance: DOSTARLIMAB-GXLY
     Indication: Endometrial cancer

REACTIONS (1)
  - Nervous system disorder [Not Recovered/Not Resolved]
